FAERS Safety Report 15478449 (Version 1)
Quarter: 2018Q4

REPORT INFORMATION
  Report Type: Report from Study
  Country: CO (occurrence: CO)
  Receive Date: 20181009
  Receipt Date: 20181009
  Transmission Date: 20190205
  Serious: Yes (Hospitalization, Other)
  Sender: FDA-Public Use
  Company Number: CO-ASTELLAS-2018US043580

PATIENT
  Age: 59 Year
  Sex: Female

DRUGS (1)
  1. TACROLIMUS. [Suspect]
     Active Substance: TACROLIMUS
     Indication: RENAL TRANSPLANT
     Route: 048
     Dates: start: 20090703

REACTIONS (2)
  - Urinary tract infection [Not Recovered/Not Resolved]
  - Female genital tract fistula [Unknown]

NARRATIVE: CASE EVENT DATE: 20180827
